FAERS Safety Report 9750070 (Version 1)
Quarter: 2013Q4

REPORT INFORMATION
  Report Type: Spontaneous
  Country: US (occurrence: US)
  Receive Date: 20131212
  Receipt Date: 20131212
  Transmission Date: 20140711
  Serious: No
  Sender: FDA-Public Use
  Company Number: US-GILEAD-US-CVT-090819

PATIENT
  Sex: Male

DRUGS (4)
  1. RANEXA [Suspect]
     Indication: ANGINA PECTORIS
     Route: 048
     Dates: start: 20091207, end: 20091211
  2. METOPROLOL                         /00376901/ [Concomitant]
     Indication: HYPERTENSION
  3. FUROSEMIDE /00032601/ [Concomitant]
  4. PROZAC [Concomitant]
     Indication: DEPRESSION

REACTIONS (1)
  - No therapeutic response [Unknown]
